FAERS Safety Report 7623215-8 (Version None)
Quarter: 2011Q3

REPORT INFORMATION
  Report Type: 
  Country: None (occurrence: None)
  Receive Date: 20110719
  Receipt Date: 20110719
  Transmission Date: 20111222
  Serious: Yes (Other)
  Sender: FDA-Public Use
  Company Number: None

PATIENT
  Age: 83 Year
  Sex: Female
  Weight: 62.5964 kg

DRUGS (2)
  1. SAVELLA [Suspect]
     Dosage: 12.5MG  INCREASED TO 25 MG - 50   1AM + 1PM
     Dates: start: 20110528, end: 20110627
  2. SAVELLA [Suspect]
     Dosage: 12.5MG  INCREASED TO 25 MG - 50   1AM + 1PM
     Dates: start: 20110609, end: 20110615

REACTIONS (2)
  - PRURITUS [None]
  - RASH [None]
